FAERS Safety Report 6135103-7 (Version None)
Quarter: 2009Q1

REPORT INFORMATION
  Report Type: 
  Country: None (occurrence: None)
  Receive Date: 20090325
  Receipt Date: 20090308
  Transmission Date: 20090719
  Serious: Yes (Other)
  Sender: FDA-Public Use
  Company Number: 2007S1008927

PATIENT
  Age: 62 Year
  Sex: Female
  Weight: 66.2252 kg

DRUGS (10)
  1. EZ PREP KIT [Suspect]
     Indication: COLONOSCOPY
     Dosage: 75 ML; TOTAL; PO
     Route: 048
     Dates: start: 20070723, end: 20070724
  2. LOTREL [Concomitant]
  3. GLYBURIDE [Concomitant]
  4. DIOVAN /01319601/ [Concomitant]
  5. METFORMIN HCL [Concomitant]
  6. TRICOR [Concomitant]
  7. ASCORBIC ACID [Concomitant]
  8. CHOLEST-OFF [Concomitant]
  9. CALCIUM [Concomitant]
  10. VITAMIN D [Concomitant]

REACTIONS (1)
  - RENAL FAILURE ACUTE [None]
